FAERS Safety Report 5368471-4 (Version None)
Quarter: 2007Q2

REPORT INFORMATION
  Report Type: 
  Country: None (occurrence: None)
  Receive Date: 20070620
  Receipt Date: 20070613
  Transmission Date: 20071010
  Serious: Yes (Life-Threatening, Hospitalization, Other)
  Sender: FDA-Public Use
  Company Number: 2005-08-1288

PATIENT
  Age: 47 Year
  Sex: Male
  Weight: 78 kg

DRUGS (8)
  1. PEG-INTRON [Suspect]
     Indication: HEPATITIS C
     Dosage: 100 MCG;/WK;SC
     Route: 058
     Dates: start: 20050525, end: 20050810
  2. REBETOL [Suspect]
     Indication: HEPATITIS C
     Dosage: 800 MG; PO
     Route: 048
     Dates: start: 20050525, end: 20050810
  3. BUCILLAMINE [Concomitant]
  4. SELBEX [Concomitant]
  5. ALDACTONE [Concomitant]
  6. LASIX [Concomitant]
  7. LIVACT [Concomitant]
  8. ALLOPURINOL [Concomitant]

REACTIONS (12)
  - BRAIN OEDEMA [None]
  - DEPRESSED LEVEL OF CONSCIOUSNESS [None]
  - ENCEPHALITIS [None]
  - HEPATIC FUNCTION ABNORMAL [None]
  - INFLAMMATION [None]
  - LEUKOENCEPHALOMYELITIS [None]
  - LOSS OF CONSCIOUSNESS [None]
  - MENINGITIS PNEUMOCOCCAL [None]
  - MULTI-ORGAN FAILURE [None]
  - PYREXIA [None]
  - SEPSIS [None]
  - WHITE BLOOD CELL COUNT INCREASED [None]
